FAERS Safety Report 22284863 (Version 1)
Quarter: 2023Q2

REPORT INFORMATION
  Report Type: Spontaneous
  Country: KR (occurrence: KR)
  Receive Date: 20230504
  Receipt Date: 20230504
  Transmission Date: 20230722
  Serious: Yes (Other)
  Sender: FDA-Public Use
  Company Number: KR-GILEAD-2023-0625989

PATIENT
  Age: 49 Year
  Sex: Male

DRUGS (1)
  1. VEMLIDY [Suspect]
     Active Substance: TENOFOVIR ALAFENAMIDE FUMARATE
     Indication: Product used for unknown indication
     Dosage: ^3 YEARS OF TAKING VEMLIDY DNA 182 IU^
     Route: 065

REACTIONS (1)
  - Retinopathy proliferative [Not Recovered/Not Resolved]

NARRATIVE: CASE EVENT DATE: 20210324
